FAERS Safety Report 5742582-3 (Version None)
Quarter: 2008Q2

REPORT INFORMATION
  Report Type: 
  Country: None (occurrence: None)
  Receive Date: 20080515
  Receipt Date: 20080515
  Transmission Date: 20081010
  Serious: Yes (Life-Threatening, Other)
  Sender: FDA-Public Use
  Company Number: None

PATIENT
  Age: 67 Year
  Sex: Male
  Weight: 111.1313 kg

DRUGS (1)
  1. DIGITEK 0.125MG MYLAN [Suspect]
     Indication: CARDIAC FAILURE
     Dosage: 1 TABLET ONCE A DAY 0.125 MG  HAVE TAKEN LANOXIN UNTIL DIGITEK BECAME AVAILABLE

REACTIONS (1)
  - CARDIAC FAILURE CONGESTIVE [None]
